FAERS Safety Report 11730957 (Version 1)
Quarter: 2015Q4

REPORT INFORMATION
  Report Type: Spontaneous
  Country: US (occurrence: US)
  Receive Date: 20151110
  Receipt Date: 20151110
  Transmission Date: 20160304
  Serious: No
  Sender: FDA-Public Use
  Company Number: US-ELI_LILLY_AND_COMPANY-US201202001929

PATIENT
  Age: 67 Year
  Sex: Male

DRUGS (1)
  1. FORTEO [Suspect]
     Active Substance: TERIPARATIDE
     Indication: OSTEOPOROSIS
     Dosage: 20 UG, QD
     Route: 065
     Dates: start: 20120201

REACTIONS (15)
  - Faeces pale [Unknown]
  - Abdominal pain lower [Recovered/Resolved]
  - Pollakiuria [Unknown]
  - Nausea [Recovered/Resolved]
  - Asthenia [Recovered/Resolved]
  - Back pain [Not Recovered/Not Resolved]
  - Myalgia [Recovered/Resolved]
  - Nausea [Not Recovered/Not Resolved]
  - Back pain [Recovered/Resolved]
  - Abdominal pain upper [Recovered/Resolved]
  - Anxiety [Unknown]
  - Decreased appetite [Not Recovered/Not Resolved]
  - Lethargy [Recovered/Resolved]
  - Decreased appetite [Recovered/Resolved]
  - Abdominal discomfort [Recovered/Resolved]

NARRATIVE: CASE EVENT DATE: 201202
